FAERS Safety Report 15255244 (Version 1)
Quarter: 2018Q3

REPORT INFORMATION
  Report Type: Spontaneous
  Country: US (occurrence: US)
  Receive Date: 20180717
  Receipt Date: 20180717
  Transmission Date: 20181010
  Serious: Yes (Life-Threatening)
  Sender: FDA-Public Use
  Company Number: None

PATIENT
  Age: 22 Year
  Sex: Male
  Weight: 79 kg

DRUGS (1)
  1. REMICADE [Suspect]
     Active Substance: INFLIXIMAB
     Dates: start: 20180702, end: 20180703

REACTIONS (3)
  - Anaphylactoid reaction [None]
  - Rash generalised [None]
  - Urticaria [None]

NARRATIVE: CASE EVENT DATE: 20180709
